FAERS Safety Report 8793214 (Version 2)
Quarter: 2012Q4

REPORT INFORMATION
  Report Type: 
  Country: GB (occurrence: GB)
  Receive Date: 20120918
  Receipt Date: 20121213
  Transmission Date: 20130627
  Serious: Yes (Hospitalization, Other)
  Sender: FDA-Public Use
  Company Number: GB-BRISTOL-MYERS SQUIBB COMPANY-16944472

PATIENT
  Age: 55 Year
  Sex: Female

DRUGS (7)
  1. REYATAZ [Suspect]
     Indication: HIV INFECTION
     Route: 048
     Dates: start: 201103, end: 201205
  2. CAFFEINE [Suspect]
     Indication: MIGRAINE
     Dosage: 1 tabs.
  3. ABACAVIR + LAMIVUDINE [Suspect]
     Indication: HIV INFECTION
     Dosage: 1df:abacavir(600mg)/lamivudine(300mg); 1 tab daily.
     Route: 048
     Dates: start: 201103, end: 201205
  4. RITONAVIR [Suspect]
     Indication: HIV INFECTION
     Route: 048
     Dates: start: 201103, end: 201205
  5. AMITRIPTYLINE [Suspect]
     Indication: MIGRAINE
     Dosage: 1 tabs.
  6. MEFENAMIC ACID [Suspect]
     Indication: MIGRAINE
     Dosage: 1 tabs.
  7. CETIRIZINE [Suspect]
     Indication: MIGRAINE
     Dosage: 1 tabs.

REACTIONS (2)
  - Lactic acidosis [Recovered/Resolved]
  - Mononeuropathy multiplex [Recovering/Resolving]
